FAERS Safety Report 9632610 (Version 1)
Quarter: 2013Q4

REPORT INFORMATION
  Report Type: Report from Study
  Country: US (occurrence: US)
  Receive Date: 20131018
  Receipt Date: 20131018
  Transmission Date: 20140711
  Serious: Yes (Other)
  Sender: FDA-Public Use
  Company Number: US-ABBVIE-13P-163-1155924-00

PATIENT
  Age: 19 Year
  Sex: 0

DRUGS (1)
  1. HUMIRA [Suspect]
     Indication: CROHN^S DISEASE
     Dosage: DOSE HELD
     Route: 058
     Dates: start: 20130905, end: 20131003

REACTIONS (2)
  - Convulsion [Recovered/Resolved]
  - Convulsion [Recovered/Resolved]
